FAERS Safety Report 11107667 (Version 1)
Quarter: 2015Q2

REPORT INFORMATION
  Report Type: Spontaneous
  Country: ES (occurrence: ES)
  Receive Date: 20150512
  Receipt Date: 20150512
  Transmission Date: 20150821
  Serious: Yes (Other)
  Sender: FDA-Public Use
  Company Number: PHHY2013ES088281

PATIENT
  Age: 2 Year
  Sex: Female
  Weight: 11 kg

DRUGS (6)
  1. VALPROATE SODIUM. [Suspect]
     Active Substance: VALPROATE SODIUM
     Indication: PSYCHOMOTOR RETARDATION
     Dosage: 30 MG/KG, QD
     Route: 065
  2. VALPROATE SODIUM. [Suspect]
     Active Substance: VALPROATE SODIUM
     Indication: SLEEP DISORDER
  3. LEVOMEPROMAZINE [Suspect]
     Active Substance: LEVOMEPROMAZINE
     Indication: EPILEPSY
  4. VALPROATE SODIUM. [Suspect]
     Active Substance: VALPROATE SODIUM
     Indication: EPILEPSY
  5. LEVOMEPROMAZINE [Suspect]
     Active Substance: LEVOMEPROMAZINE
     Indication: PSYCHOMOTOR RETARDATION
     Dosage: 5 MG PER DAY
     Route: 065
  6. LEVOMEPROMAZINE [Suspect]
     Active Substance: LEVOMEPROMAZINE
     Indication: SLEEP DISORDER

REACTIONS (2)
  - Oculogyric crisis [Recovered/Resolved]
  - Gaze palsy [Recovered/Resolved]
